FAERS Safety Report 15042866 (Version 2)
Quarter: 2018Q4

REPORT INFORMATION
  Report Type: Spontaneous
  Country: US (occurrence: US)
  Receive Date: 20180621
  Receipt Date: 20181219
  Transmission Date: 20190204
  Serious: Yes (Other)
  Sender: FDA-Public Use
  Company Number: US-ASTRAZENECA-2018SE77582

PATIENT
  Sex: Female
  Weight: 81.6 kg

DRUGS (45)
  1. ZOLPIDEM [Concomitant]
     Active Substance: ZOLPIDEM\ZOLPIDEM TARTRATE
     Indication: SLEEP DISORDER
     Dates: start: 201101, end: 201207
  2. SPIRONOLACTONE. [Concomitant]
     Active Substance: SPIRONOLACTONE
  3. NEXIUM [Suspect]
     Active Substance: ESOMEPRAZOLE MAGNESIUM
     Indication: GASTROOESOPHAGEAL REFLUX DISEASE
     Route: 048
     Dates: start: 20110817
  4. LOTREL [Concomitant]
     Active Substance: AMLODIPINE BESYLATE\BENAZEPRIL HYDROCHLORIDE
     Indication: BLOOD PRESSURE MEASUREMENT
     Dates: start: 201101, end: 201412
  5. GLIPIZIDE. [Concomitant]
     Active Substance: GLIPIZIDE
     Indication: DIABETES MELLITUS
     Dates: start: 200911, end: 201610
  6. CARVEDILOL. [Concomitant]
     Active Substance: CARVEDILOL
     Indication: CARDIAC DISORDER
     Dosage: 3.125 MG TWICE DAILY
     Dates: start: 201211, end: 201412
  7. RANITIDINE. [Concomitant]
     Active Substance: RANITIDINE
     Dates: start: 201201, end: 201412
  8. CYCLOBENZAPRINE HYDROCHLORIDE. [Concomitant]
     Active Substance: CYCLOBENZAPRINE HYDROCHLORIDE
  9. HYDROCHLOROTHIAZIDE. [Concomitant]
     Active Substance: HYDROCHLOROTHIAZIDE
  10. VITAMIN D3 [Concomitant]
     Active Substance: CHOLECALCIFEROL
     Dosage: 1000 UNIT DAILY
  11. LIPITOR [Concomitant]
     Active Substance: ATORVASTATIN CALCIUM
     Indication: BLOOD CHOLESTEROL
     Dates: start: 201108, end: 201110
  12. CEFUROXIME. [Concomitant]
     Active Substance: CEFUROXIME
  13. FLUTICASONE. [Concomitant]
     Active Substance: FLUTICASONE
     Dosage: 50 MCG
  14. OXYBUTYNIN. [Concomitant]
     Active Substance: OXYBUTYNIN CHLORIDE
  15. PREGABALIN. [Concomitant]
     Active Substance: PREGABALIN
  16. FUROSEMIDE. [Concomitant]
     Active Substance: FUROSEMIDE
  17. NEXIUM [Suspect]
     Active Substance: ESOMEPRAZOLE MAGNESIUM
     Indication: GASTROOESOPHAGEAL REFLUX DISEASE
     Route: 048
     Dates: start: 201401, end: 201408
  18. OMEPRAZOLE. [Suspect]
     Active Substance: OMEPRAZOLE
     Indication: GASTROOESOPHAGEAL REFLUX DISEASE
     Route: 065
     Dates: start: 201707, end: 201710
  19. TOVIAZ [Concomitant]
     Active Substance: FESOTERODINE FUMARATE
     Indication: BLADDER DISORDER
     Dates: start: 201207, end: 201611
  20. TRAZODONE [Concomitant]
     Active Substance: TRAZODONE HYDROCHLORIDE
     Indication: SLEEP DISORDER
     Dosage: 50 MG AT BEDTIME
     Dates: start: 201107, end: 201610
  21. HYDROCODON ACETAMINOPHEN [Concomitant]
     Dosage: 7.5-500 MG
  22. CIPROFLOXACIN. [Concomitant]
     Active Substance: CIPROFLOXACIN
  23. METOCLOPRAMIDE. [Concomitant]
     Active Substance: METOCLOPRAMIDE
  24. TRAMADOL. [Concomitant]
     Active Substance: TRAMADOL
  25. PRAVASTATIN. [Concomitant]
     Active Substance: PRAVASTATIN
  26. ONGLYZA [Concomitant]
     Active Substance: SAXAGLIPTIN HYDROCHLORIDE
     Indication: DIABETES MELLITUS
     Dates: start: 201109, end: 201410
  27. ESTRACE [Concomitant]
     Active Substance: ESTRADIOL
     Indication: BLOOD OESTROGEN
     Dates: start: 201011, end: 201708
  28. GABAPENTIN. [Concomitant]
     Active Substance: GABAPENTIN
  29. NEXIUM [Suspect]
     Active Substance: ESOMEPRAZOLE MAGNESIUM
     Indication: GASTROOESOPHAGEAL REFLUX DISEASE
     Route: 048
     Dates: start: 2011, end: 2017
  30. NEXIUM [Suspect]
     Active Substance: ESOMEPRAZOLE MAGNESIUM
     Indication: GASTROOESOPHAGEAL REFLUX DISEASE
     Route: 048
     Dates: start: 201108, end: 201205
  31. PANTOPRAZOLE [Suspect]
     Active Substance: PANTOPRAZOLE
     Indication: GASTROOESOPHAGEAL REFLUX DISEASE
     Route: 065
     Dates: start: 201407, end: 201412
  32. PANTOPRAZOLE [Suspect]
     Active Substance: PANTOPRAZOLE
     Indication: GASTROOESOPHAGEAL REFLUX DISEASE
     Route: 065
     Dates: start: 20141105
  33. PENICILLIN NOS [Concomitant]
     Active Substance: PENICILLIN
  34. AMOXICILLIN. [Concomitant]
     Active Substance: AMOXICILLIN
  35. NAPROXEN. [Concomitant]
     Active Substance: NAPROXEN
  36. NEXIUM [Suspect]
     Active Substance: ESOMEPRAZOLE MAGNESIUM
     Indication: GASTROOESOPHAGEAL REFLUX DISEASE
     Route: 048
     Dates: start: 201611, end: 201704
  37. MELOXICAM. [Concomitant]
     Active Substance: MELOXICAM
  38. BACLOFEN. [Concomitant]
     Active Substance: BACLOFEN
  39. ALLOPURINOL. [Concomitant]
     Active Substance: ALLOPURINOL
  40. CEPHALEXIN. [Concomitant]
     Active Substance: CEPHALEXIN
  41. CITALOPRAM [Concomitant]
     Active Substance: CITALOPRAM HYDROBROMIDE
  42. NEXIUM [Suspect]
     Active Substance: ESOMEPRAZOLE MAGNESIUM
     Indication: GASTROOESOPHAGEAL REFLUX DISEASE
     Route: 048
     Dates: start: 201502, end: 201512
  43. TRIAMTERENE- HCTZ [Concomitant]
     Indication: BLOOD PRESSURE MEASUREMENT
     Dates: start: 200802, end: 201301
  44. FERROUS SULFATE. [Concomitant]
     Active Substance: FERROUS SULFATE
  45. LOSARTAN. [Concomitant]
     Active Substance: LOSARTAN

REACTIONS (2)
  - Chronic kidney disease [Not Recovered/Not Resolved]
  - Acute kidney injury [Not Recovered/Not Resolved]
